FAERS Safety Report 7930232-7 (Version None)
Quarter: 2011Q4

REPORT INFORMATION
  Report Type: 
  Country: None (occurrence: None)
  Receive Date: 20111121
  Receipt Date: 20111114
  Transmission Date: 20120403
  Serious: Yes (Death, Other)
  Sender: FDA-Public Use
  Company Number: FR-PFIZER INC-K201000989

PATIENT
  Age: 68 Year
  Sex: Female
  Weight: 65 kg

DRUGS (25)
  1. VORICONAZOLE [Suspect]
     Indication: BRONCHOPULMONARY ASPERGILLOSIS
     Dosage: 360 MG, 2X/DAY
     Route: 042
     Dates: start: 20100718, end: 20100718
  2. FUROSEMIDE [Concomitant]
     Indication: PULMONARY OEDEMA
     Dosage: 100 MG, TWICE ON 19JUL2010
     Route: 042
     Dates: start: 20100719, end: 20100719
  3. VITAMIN K TAB [Concomitant]
     Dosage: UNK
     Dates: start: 20100714
  4. ANIDULAFUNGIN [Suspect]
     Indication: BRONCHOPULMONARY ASPERGILLOSIS
     Dosage: 100 MG, 1X/DAY
     Dates: start: 20100721
  5. METHYLPREDNISOLONE [Concomitant]
     Indication: PULMONARY OEDEMA
     Dosage: 60 MG, 1X/DAY
     Route: 042
     Dates: start: 20100719, end: 20100719
  6. POTASSIUM CHLORIDE [Concomitant]
     Dosage: 5 G, SINGLE
     Route: 042
     Dates: start: 20100721, end: 20100721
  7. SODIUM CHLORIDE [Concomitant]
     Indication: HYPONATRAEMIA
     Dosage: 8 G, UNK
     Route: 042
     Dates: start: 20100714
  8. VORICONAZOLE [Suspect]
     Dosage: 260 MG, 1X/DAY
     Route: 042
     Dates: start: 20100721
  9. PIPERACILLIN AND TAZOBACTAM [Concomitant]
     Dosage: UNK
     Dates: start: 20100714, end: 20100722
  10. ESOMEPRAZOLE [Concomitant]
     Indication: GASTRITIS
     Dosage: 40 MG, 1X/DAY
     Route: 048
     Dates: start: 20100708, end: 20100717
  11. POTASSIUM CHLORIDE [Concomitant]
     Dosage: 4 G, SINGLE
     Route: 042
     Dates: start: 20100722, end: 20100722
  12. CORGARD [Suspect]
     Indication: HYPERTENSION
     Dosage: 80 MG, 2X/DAY
     Route: 048
     Dates: start: 20070101
  13. POTASSIUM CHLORIDE [Concomitant]
     Indication: HYPOKALAEMIA
     Dosage: 4 G, UNK
     Route: 042
     Dates: start: 20100714, end: 20100722
  14. FLUCONAZOLE [Concomitant]
     Indication: PROPHYLAXIS
     Dosage: 200 MG, 2X/DAY
     Dates: start: 20100714, end: 20100721
  15. AMIKACIN [Concomitant]
     Indication: PYREXIA
     Dosage: 1 G, 1X/DAY
     Dates: start: 20100714, end: 20100719
  16. PRAVASTATIN [Concomitant]
     Dosage: 20 MG, 1X/DAY
     Route: 048
     Dates: start: 20021212, end: 20100718
  17. PARACETAMOL [Concomitant]
     Dosage: UNK
     Dates: start: 20100714
  18. METRONIDAZOLE [Concomitant]
     Dosage: UNK
     Dates: start: 20100714
  19. IRBESARTAN AND HYDROCHLOROTHIAZIDE [Concomitant]
     Dosage: UNK
     Dates: start: 20100714
  20. VANCOMYCIN [Concomitant]
     Dosage: UNK
     Dates: start: 20100714
  21. INSULIN [Concomitant]
     Indication: DIABETES MELLITUS
     Dosage: 10 IU, AS NEEDED
     Route: 058
     Dates: start: 20100714
  22. PICLOXYDINE [Concomitant]
     Indication: CONJUNCTIVITIS
     Dosage: 3 DF, SINGLE
     Route: 061
     Dates: start: 20100718, end: 20100718
  23. VORICONAZOLE [Suspect]
     Dosage: 200 MG, 2X/DAY
     Route: 042
     Dates: start: 20100719, end: 20100721
  24. ACYCLOVIR [Concomitant]
     Dosage: UNK
     Dates: start: 20100715
  25. GLIBENCLAMIDE [Concomitant]
     Dosage: UNK
     Dates: start: 20100714

REACTIONS (3)
  - HYPOTENSION [None]
  - HYPERKALAEMIA [None]
  - BRADYCARDIA [None]
